FAERS Safety Report 7149648-4 (Version None)
Quarter: 2010Q4

REPORT INFORMATION
  Report Type: 
  Country: None (occurrence: None)
  Receive Date: 20101209
  Receipt Date: 20101129
  Transmission Date: 20110411
  Serious: Yes (Life-Threatening, Hospitalization, Disabling, Other)
  Sender: FDA-Public Use
  Company Number: US-MERCK-1011USA03671

PATIENT
  Age: 12 Year
  Sex: Female

DRUGS (1)
  1. SINGULAIR [Suspect]
     Indication: ADENOIDAL DISORDER
     Route: 048
     Dates: start: 20100201, end: 20101123

REACTIONS (7)
  - DECREASED APPETITE [None]
  - DEPRESSION [None]
  - OVERDOSE [None]
  - SLEEP TERROR [None]
  - SUICIDAL IDEATION [None]
  - SUICIDE ATTEMPT [None]
  - WEIGHT DECREASED [None]
